FAERS Safety Report 17402530 (Version 1)
Quarter: 2020Q1

REPORT INFORMATION
  Report Type: Spontaneous
  Country: US (occurrence: US)
  Receive Date: 20200210
  Receipt Date: 20200210
  Transmission Date: 20200409
  Serious: Yes (Other)
  Sender: FDA-Public Use
  Company Number: None

PATIENT
  Age: 82 Year
  Sex: Female
  Weight: 90 kg

DRUGS (20)
  1. ATORVASTATIN [Concomitant]
     Active Substance: ATORVASTATIN
  2. OMEGA-3 FISH OIL [Concomitant]
     Active Substance: FISH OIL\OMEGA-3 FATTY ACIDS
  3. LISINOPRIL. [Concomitant]
     Active Substance: LISINOPRIL
  4. FERROUS SULFATE. [Concomitant]
     Active Substance: FERROUS SULFATE
  5. VITAMIN B12 [Concomitant]
     Active Substance: CYANOCOBALAMIN
  6. FUROSEMIDE 40 MG TAB SOL [Suspect]
     Active Substance: FUROSEMIDE
     Indication: OEDEMA
     Dosage: ?          QUANTITY:45 TABLET(S);?
     Route: 048
     Dates: start: 20160630, end: 20200210
  7. CLOPIDOGRIL [Concomitant]
  8. POTASSIUM [Concomitant]
     Active Substance: POTASSIUM
  9. VITAMIN D3 [Concomitant]
     Active Substance: CHOLECALCIFEROL
  10. TUMERIC [Concomitant]
     Active Substance: HERBALS\TURMERIC
  11. VITAMIN E [Concomitant]
     Active Substance: .ALPHA.-TOCOPHEROL
  12. PENTASA [Concomitant]
     Active Substance: MESALAMINE
  13. COENZYME Q10 [Concomitant]
     Active Substance: UBIDECARENONE
  14. CARVEDILOL. [Concomitant]
     Active Substance: CARVEDILOL
  15. ELIQUIS [Concomitant]
     Active Substance: APIXABAN
  16. TRIPLE MAGNESIUM COMPLEX [Concomitant]
  17. ISOSORBIDE. [Concomitant]
     Active Substance: ISOSORBIDE
  18. CRANBERRY. [Concomitant]
     Active Substance: CRANBERRY
  19. GARLIC. [Concomitant]
     Active Substance: GARLIC
  20. VITAMIN C [Concomitant]
     Active Substance: ASCORBIC ACID

REACTIONS (10)
  - Hypoacusis [None]
  - Asthenia [None]
  - Back pain [None]
  - Eye irritation [None]
  - Intentional dose omission [None]
  - Dyspnoea [None]
  - Frequent bowel movements [None]
  - Abdominal distension [None]
  - Lacrimation increased [None]
  - Depression [None]

NARRATIVE: CASE EVENT DATE: 20191201
